FAERS Safety Report 15637607 (Version 1)
Quarter: 2018Q4

REPORT INFORMATION
  Report Type: Spontaneous
  Country: US (occurrence: US)
  Receive Date: 20181120
  Receipt Date: 20181120
  Transmission Date: 20190205
  Serious: No
  Sender: FDA-Public Use
  Company Number: US-JNJFOC-20180516749

PATIENT
  Age: 65 Year
  Sex: Female
  Weight: 61 kg

DRUGS (10)
  1. ALLOPURINOL. [Concomitant]
     Active Substance: ALLOPURINOL
  2. CALCIUM VITAMIN D [Concomitant]
     Active Substance: CALCIUM\VITAMIN D
  3. LYRICA [Concomitant]
     Active Substance: PREGABALIN
  4. METFORMIN [Concomitant]
     Active Substance: METFORMIN HYDROCHLORIDE
  5. COQ10 [Concomitant]
     Active Substance: UBIDECARENONE
  6. IMBRUVICA [Suspect]
     Active Substance: IBRUTINIB
     Indication: NON-HODGKIN^S LYMPHOMA
     Route: 065
     Dates: start: 20180328
  7. ASPRIN [Concomitant]
     Active Substance: ASPIRIN
  8. OMEGA 3                            /01333901/ [Concomitant]
     Active Substance: FISH OIL\TOCOPHEROL
  9. PRAVASTATIN. [Concomitant]
     Active Substance: PRAVASTATIN
  10. MONTELUKAST [Concomitant]
     Active Substance: MONTELUKAST SODIUM

REACTIONS (4)
  - Dry mouth [Unknown]
  - Dermatitis acneiform [Unknown]
  - Dry skin [Unknown]
  - Dry eye [Unknown]

NARRATIVE: CASE EVENT DATE: 20180318
